FAERS Safety Report 15401105 (Version 1)
Quarter: 2018Q4

REPORT INFORMATION
  Report Type: Spontaneous
  Country: DE (occurrence: DE)
  Receive Date: 20180919
  Receipt Date: 20180919
  Transmission Date: 20190204
  Serious: Yes (Other)
  Sender: FDA-Public Use
  Company Number: DE-TEVA-2018-DE-953001

PATIENT
  Age: 12 Year
  Sex: Male

DRUGS (1)
  1. IBUPROFEN RATIOPHARM 400 MG AKUT [Suspect]
     Active Substance: IBUPROFEN
     Indication: PAIN
     Dosage: HALF TABLET IN THE MORNING, ONE TABLET IN THE AFTERNOON AND ONE TABLET NEXT DAY
     Dates: start: 20180908, end: 20180909

REACTIONS (6)
  - Swelling face [Recovering/Resolving]
  - Pyrexia [Recovered/Resolved]
  - Dyspnoea [Unknown]
  - Angioedema [Recovering/Resolving]
  - Lip swelling [Recovering/Resolving]
  - Hypoaesthesia oral [Recovering/Resolving]

NARRATIVE: CASE EVENT DATE: 20180908
